FAERS Safety Report 7209457-4 (Version None)
Quarter: 2010Q4

REPORT INFORMATION
  Report Type: 
  Country: None (occurrence: None)
  Receive Date: 20101222
  Receipt Date: 20101209
  Transmission Date: 20110411
  Serious: Yes (Other)
  Sender: FDA-Public Use
  Company Number: 2010005387

PATIENT
  Age: 69 Year
  Sex: Male

DRUGS (1)
  1. TARCEVA [Suspect]
     Indication: PANCREATIC CARCINOMA
     Dosage: 100 MG, ORAL
     Route: 048
     Dates: start: 20090101, end: 20090101

REACTIONS (6)
  - ABDOMINAL PAIN LOWER [None]
  - DECREASED APPETITE [None]
  - FEMORAL HERNIA [None]
  - MICTURITION URGENCY [None]
  - NAUSEA [None]
  - VOMITING [None]
